FAERS Safety Report 23113378 (Version 1)
Quarter: 2023Q4

REPORT INFORMATION
  Report Type: Spontaneous
  Country: IE (occurrence: IE)
  Receive Date: 20231027
  Receipt Date: 20231027
  Transmission Date: 20240110
  Serious: Yes (Death, Hospitalization, Other)
  Sender: FDA-Public Use
  Company Number: IE-009507513-2104IRL000678

PATIENT
  Age: 78 Year
  Sex: Female
  Weight: 58.7 kg

DRUGS (35)
  1. MIRTAZAPINE [Suspect]
     Active Substance: MIRTAZAPINE
     Indication: Anxiety
     Dosage: 15 MILLIGRAM, QD
     Route: 048
     Dates: start: 20210311, end: 20210402
  2. PEMBROLIZUMAB [Suspect]
     Active Substance: PEMBROLIZUMAB
     Indication: Endometrial cancer
     Dosage: 200 MILLIGRAM, Q3W
     Route: 042
     Dates: start: 20201119, end: 20210331
  3. PEMBROLIZUMAB [Suspect]
     Active Substance: PEMBROLIZUMAB
     Dosage: 200 MILLIGRAM, Q3W
     Route: 042
     Dates: start: 20210331, end: 20210331
  4. PEMBROLIZUMAB [Suspect]
     Active Substance: PEMBROLIZUMAB
     Dosage: CYCLE 8
     Dates: start: 20210422
  5. PEMBROLIZUMAB [Suspect]
     Active Substance: PEMBROLIZUMAB
     Dosage: CYCLE 8
     Dates: start: 20210512
  6. PEMBROLIZUMAB [Suspect]
     Active Substance: PEMBROLIZUMAB
     Dosage: CYCLE 11
     Dates: start: 20210623
  7. PEMBROLIZUMAB [Suspect]
     Active Substance: PEMBROLIZUMAB
     Dosage: 200 MILLIGRAM, Q3W
     Route: 042
     Dates: start: 20210422, end: 20210623
  8. PEMBROLIZUMAB [Suspect]
     Active Substance: PEMBROLIZUMAB
     Dosage: 200 MILLIGRAM, Q3W
     Route: 042
     Dates: start: 20210602, end: 20210623
  9. LENVATINIB MESYLATE [Suspect]
     Active Substance: LENVATINIB MESYLATE
     Indication: Endometrial cancer
     Dosage: STARTING DOSE : 20 MILLIGRAM, QD (FLUCTUATED DOSE)
     Route: 048
     Dates: start: 20201119
  10. LENVATINIB MESYLATE [Suspect]
     Active Substance: LENVATINIB MESYLATE
     Dosage: 14 MILLIGRAM, QD
     Route: 048
     Dates: start: 20210310, end: 20210330
  11. LENVATINIB MESYLATE [Suspect]
     Active Substance: LENVATINIB MESYLATE
     Dosage: 10 MILLIGRAM, QD
     Route: 048
     Dates: start: 20210414, end: 20210803
  12. LENVATINIB MESYLATE [Suspect]
     Active Substance: LENVATINIB MESYLATE
     Dosage: CYCLE 8
     Dates: start: 20210422
  13. LENVATINIB MESYLATE [Suspect]
     Active Substance: LENVATINIB MESYLATE
     Dosage: CYCLE 8
     Dates: start: 20210512
  14. LENVATINIB MESYLATE [Suspect]
     Active Substance: LENVATINIB MESYLATE
     Dosage: CYCLE 12
     Dates: start: 20210803
  15. LENVATINIB MESYLATE [Suspect]
     Active Substance: LENVATINIB MESYLATE
     Dosage: 10 MILLIGRAM, QD
     Route: 048
     Dates: start: 20210602, end: 20210803
  16. AMLODIPINE [Concomitant]
     Active Substance: AMLODIPINE BESYLATE
     Indication: Hypertension
     Dosage: 10 MILLIGRAM, QD
     Route: 048
     Dates: start: 20201126, end: 20210402
  17. ATORVASTATIN [Concomitant]
     Active Substance: ATORVASTATIN
     Indication: Hypertension
     Dosage: 10 MILLIGRAM, QD
     Route: 048
     Dates: start: 201601, end: 20210402
  18. XANAX [Concomitant]
     Active Substance: ALPRAZOLAM
     Indication: Anxiety
     Dosage: 25 MICROGRAM, QD (ALSO REPORTED PRN)
     Route: 048
     Dates: start: 20201126
  19. ACETAMINOPHEN [Concomitant]
     Active Substance: ACETAMINOPHEN
     Indication: Back pain
     Dosage: TOTAL DAILY DOSE: 1 GRAM, PRN
     Route: 048
     Dates: start: 202001, end: 20210622
  20. HYDROCORTISONE [Concomitant]
     Active Substance: HYDROCORTISONE
     Indication: Rash
     Dosage: TOTAL DAILY DOSE: 1 APPLICATION; PRN
     Route: 061
     Dates: start: 20210210
  21. SYSTANE (HYPROMELLOSE 2910 (4000 MPA.S)) [Concomitant]
     Active Substance: HYPROMELLOSE 2910 (4000 MPA.S)
     Indication: Dry eye
     Dosage: TOTAL DAILY DOSE: 2 APPLICATION; PRN
     Route: 061
     Dates: start: 20210217
  22. CARBAMIDE PEROXIDE [Concomitant]
     Active Substance: CARBAMIDE PEROXIDE
     Indication: Dry eye
     Dosage: TOTAL DAILY DOSE 5 APPLICATIONS
     Route: 061
     Dates: start: 20210217
  23. LEVOTHYROXINE [Concomitant]
     Active Substance: LEVOTHYROXINE
     Indication: Hypothyroidism
     Dosage: 25 MILLIGRAM, QD
     Route: 048
     Dates: start: 20210311, end: 20210604
  24. TOZINAMERAN [Concomitant]
     Active Substance: TOZINAMERAN
     Indication: COVID-19 prophylaxis
     Dosage: 1 APPLICATION, ONCE; FORMULATION: SOLUTION FOR INJECTION/INFUSION
     Route: 030
     Dates: start: 20210324, end: 20210324
  25. HYDROGEN PEROXIDE [Concomitant]
     Active Substance: HYDROGEN PEROXIDE
     Indication: Mouth haemorrhage
     Dosage: TOTAL DAILY DOSE: 1 APPLICATION
     Route: 048
     Dates: start: 20210330, end: 20210330
  26. ENOXAPARIN SODIUM [Concomitant]
     Active Substance: ENOXAPARIN SODIUM
     Indication: Thrombosis prophylaxis
     Dosage: UNK
  27. BIOXTRA [Concomitant]
     Indication: Stomatitis
     Dosage: TOTAL DAILY DOSE: 1 APPLICATION , PRN
     Route: 048
     Dates: start: 20201125
  28. HERBALS\SENNOSIDES [Concomitant]
     Active Substance: HERBALS\SENNOSIDES
     Indication: Constipation
     Dosage: 2 TABLET, QD ; STRENGTH: 2 DOSAGE FORM
     Route: 048
     Dates: start: 20201223
  29. OXYCODONE HYDROCHLORIDE [Concomitant]
     Active Substance: OXYCODONE HYDROCHLORIDE
     Indication: Pain
     Dosage: UNK
  30. PREDNISOLONE [Concomitant]
     Active Substance: PREDNISOLONE
     Indication: Liver function test increased
     Dosage: UNK
  31. PREDNISOLONE [Concomitant]
     Active Substance: PREDNISOLONE
     Indication: Fatigue
  32. OMEPRAZOLE [Concomitant]
     Active Substance: OMEPRAZOLE
     Indication: Gastrooesophageal reflux disease
     Dosage: UNK
  33. SULFAMETHOXAZOLE\TRIMETHOPRIM [Concomitant]
     Active Substance: SULFAMETHOXAZOLE\TRIMETHOPRIM
     Indication: Infection prophylaxis
     Dosage: UNK
  34. CIPROFLOXACIN [Concomitant]
     Active Substance: CIPROFLOXACIN
     Indication: Infection prophylaxis
     Dosage: UNK
  35. MAGNESIUM OXIDE [Concomitant]
     Active Substance: MAGNESIUM OXIDE
     Indication: Hypomagnesaemia
     Dosage: UNK

REACTIONS (2)
  - Malignant neoplasm progression [Fatal]
  - Urinary retention [Recovered/Resolved]

NARRATIVE: CASE EVENT DATE: 20210401
